FAERS Safety Report 23056619 (Version 1)
Quarter: 2023Q4

REPORT INFORMATION
  Report Type: Report from Study
  Country: US (occurrence: US)
  Receive Date: 20231011
  Receipt Date: 20231011
  Transmission Date: 20240110
  Serious: Yes (Other)
  Sender: FDA-Public Use
  Company Number: US-ABBVIE-5445347

PATIENT
  Age: 62 Year
  Sex: Male

DRUGS (1)
  1. HUMIRA [Suspect]
     Active Substance: ADALIMUMAB
     Indication: Rheumatoid arthritis
     Dosage: FORM STRENGTH: 40 MG
     Route: 058
     Dates: start: 20220322

REACTIONS (10)
  - Spinal column injury [Unknown]
  - Hiatus hernia [Unknown]
  - Musculoskeletal stiffness [Unknown]
  - Joint stiffness [Unknown]
  - Osteoarthritis [Unknown]
  - Haemorrhoids [Unknown]
  - Carpal tunnel syndrome [Unknown]
  - Neck pain [Unknown]
  - Hypoaesthesia [Unknown]
  - Nerve injury [Unknown]

NARRATIVE: CASE EVENT DATE: 20220420
